FAERS Safety Report 24295820 (Version 1)
Quarter: 2024Q3

REPORT INFORMATION
  Report Type: Report from Study
  Country: US (occurrence: US)
  Receive Date: 20240908
  Receipt Date: 20240908
  Transmission Date: 20241017
  Serious: Yes (Other)
  Sender: ABBVIE
  Company Number: US-ABBVIE-5908181

PATIENT
  Sex: Male

DRUGS (1)
  1. RINVOQ [Suspect]
     Active Substance: UPADACITINIB
     Indication: Colitis ulcerative
     Dosage: LAST ADMIN DATE- 2024
     Route: 048
     Dates: start: 20240226

REACTIONS (2)
  - Colectomy total [Not Recovered/Not Resolved]
  - Therapeutic product effect delayed [Unknown]

NARRATIVE: CASE EVENT DATE: 20240101
